FAERS Safety Report 17481030 (Version 3)
Quarter: 2020Q4

REPORT INFORMATION
  Report Type: Spontaneous
  Country: FR (occurrence: FR)
  Receive Date: 20200302
  Receipt Date: 20201010
  Transmission Date: 20210113
  Serious: Yes (Hospitalization, Other)
  Sender: FDA-Public Use
  Company Number: FR-LUPIN PHARMACEUTICALS INC.-2020-00948

PATIENT
  Age: 72 Year
  Sex: Male

DRUGS (8)
  1. FOSFOMYCIN [Concomitant]
     Active Substance: FOSFOMYCIN
     Indication: OTITIS EXTERNA FUNGAL
     Dosage: UNK
     Route: 065
  2. VORICONAZOLE. [Suspect]
     Active Substance: VORICONAZOLE
     Indication: OTITIS EXTERNA FUNGAL
     Dosage: UNK
     Route: 042
  3. POSACONAZOLE [Concomitant]
     Active Substance: POSACONAZOLE
     Indication: OTITIS EXTERNA FUNGAL
     Route: 065
  4. CEFTAZIDIME. [Suspect]
     Active Substance: CEFTAZIDIME
     Indication: OTITIS EXTERNA FUNGAL
     Dosage: UNK
     Route: 042
  5. FLUCONAZOLE. [Concomitant]
     Active Substance: FLUCONAZOLE
     Indication: OTITIS EXTERNA FUNGAL
     Dosage: UNK
     Route: 065
  6. IMIPENEM [Suspect]
     Active Substance: IMIPENEM
     Indication: OTITIS EXTERNA FUNGAL
     Dosage: UNK
     Route: 065
  7. INSULIN BASAL [Concomitant]
     Active Substance: INSULIN NOS
     Indication: DIABETES MELLITUS
  8. CIPROFLOXACIN. [Suspect]
     Active Substance: CIPROFLOXACIN
     Indication: OTITIS EXTERNA FUNGAL
     Dosage: UNK
     Route: 042

REACTIONS (3)
  - Cerebral infarction [Unknown]
  - Facial paralysis [Unknown]
  - Drug ineffective [Unknown]
